FAERS Safety Report 7044176-9 (Version None)
Quarter: 2010Q4

REPORT INFORMATION
  Report Type: 
  Country: None (occurrence: None)
  Receive Date: 20101013
  Receipt Date: 20101008
  Transmission Date: 20110411
  Serious: No
  Sender: FDA-Public Use
  Company Number: US-PFIZER INC-2010114326

PATIENT
  Sex: Female
  Weight: 74.83 kg

DRUGS (4)
  1. CLEOCIN [Suspect]
     Indication: CYSTOCELE
     Dosage: 100 MG, DAILY
     Route: 067
     Dates: start: 20100903, end: 20100901
  2. ALTACE [Concomitant]
     Indication: HYPERTENSION
     Dosage: UNK
  3. NORVASC [Concomitant]
     Indication: HYPERTENSION
     Dosage: UNK
  4. LIPITOR [Concomitant]
     Dosage: UNK

REACTIONS (2)
  - BURNING SENSATION [None]
  - PAIN [None]
